FAERS Safety Report 10684650 (Version 10)
Quarter: 2019Q1

REPORT INFORMATION
  Report Type: Spontaneous
  Country: GB (occurrence: GB)
  Receive Date: 20141231
  Receipt Date: 20190109
  Transmission Date: 20190417
  Serious: Yes (Hospitalization, Other)
  Sender: FDA-Public Use
  Company Number: PHHY2014GB167673

PATIENT
  Age: 1 Day
  Sex: Female
  Weight: 2.55 kg

DRUGS (6)
  1. ENOXAPARIN [Concomitant]
     Active Substance: ENOXAPARIN
     Indication: FOETAL EXPOSURE DURING PREGNANCY
     Dosage: (MATERNAL DOSE:UNKNOWN)
     Route: 064
  2. PERFALGAN [Suspect]
     Active Substance: ACETAMINOPHEN
     Indication: FOETAL EXPOSURE DURING PREGNANCY
     Dosage: STAGGERED PARACETAMOL OVERDOSE(UNINTENTIONAL) OVER WEEKS AND DAYS PRIOR TO DELIVERY
     Route: 064
  3. CEFRADINE [Concomitant]
     Active Substance: CEPHRADINE
     Indication: FOETAL EXPOSURE DURING PREGNANCY
     Dosage: (MATERNAL DOSE: UNKNOWN)
     Route: 064
  4. COCODAMOL [Suspect]
     Active Substance: ACETAMINOPHEN\CODEINE PHOSPHATE
     Indication: FOETAL EXPOSURE DURING PREGNANCY
     Dosage: STAGGERED PARACETAMOL OVERDOSE(UNINTENTIONAL) OVER WEEKS AND DAYS PRIOR TO DELIVERY
     Route: 064
  5. FLUOXETINE [Concomitant]
     Active Substance: FLUOXETINE HYDROCHLORIDE
     Indication: FOETAL EXPOSURE DURING PREGNANCY
     Dosage: (MATERNAL DOSE:UNKNOWN)
     Route: 064
  6. METRONIDAZOLE. [Concomitant]
     Active Substance: METRONIDAZOLE
     Indication: FOETAL EXPOSURE DURING PREGNANCY
     Dosage: (MATERNAL DOSE:UNKNOWN)
     Route: 064

REACTIONS (13)
  - Developmental delay [Unknown]
  - Foetal monitoring abnormal [Unknown]
  - Gait inability [Unknown]
  - Drug withdrawal syndrome neonatal [Recovered/Resolved]
  - Premature baby [Unknown]
  - Liver function test abnormal [Recovered/Resolved]
  - Jaundice neonatal [Recovered/Resolved]
  - Tremor [Unknown]
  - Aphasia [Unknown]
  - Respiratory distress [Recovered/Resolved]
  - Foetal arrhythmia [Recovered/Resolved]
  - Drug dependence [Unknown]
  - Foetal exposure during pregnancy [Unknown]
